FAERS Safety Report 10047649 (Version 2)
Quarter: 2016Q1

REPORT INFORMATION
  Report Type: Spontaneous
  Country: SE (occurrence: SE)
  Receive Date: 20140331
  Receipt Date: 20160226
  Transmission Date: 20160525
  Serious: Yes (Hospitalization, Other)
  Sender: FDA-Public Use
  Company Number: SE-PFIZER INC-2014087023

PATIENT
  Age: 22 Year
  Sex: Female

DRUGS (5)
  1. SPASMOFEN /07356001/ [Concomitant]
     Dosage: UNK, AS NEEDED
  2. LYRICA [Suspect]
     Active Substance: PREGABALIN
     Indication: ABDOMINAL PAIN
     Dosage: 150 MG, 2X/DAY
  3. PAPAVERIN [Concomitant]
     Dosage: UNK, AS NEEDED
  4. DICLOFENAC [Concomitant]
     Active Substance: DICLOFENAC
  5. TRAMADOL. [Concomitant]
     Active Substance: TRAMADOL
     Dosage: UNK, AS NEEDED

REACTIONS (2)
  - Product use issue [Unknown]
  - Seizure [Unknown]

NARRATIVE: CASE EVENT DATE: 20140225
